FAERS Safety Report 15361421 (Version 2)
Quarter: 2019Q3

REPORT INFORMATION
  Report Type: Spontaneous
  Country: FR (occurrence: FR)
  Receive Date: 20180907
  Receipt Date: 20190806
  Transmission Date: 20191004
  Serious: Yes (Hospitalization, Other)
  Sender: FDA-Public Use
  Company Number: PHHY2018FR025911

PATIENT
  Age: 65 Year
  Sex: Male

DRUGS (6)
  1. PREDNISONE. [Suspect]
     Active Substance: PREDNISONE
     Dosage: 20 MG, QD
     Route: 065
  2. RITUXIMAB. [Suspect]
     Active Substance: RITUXIMAB
     Indication: CHRONIC LYMPHOCYTIC LEUKAEMIA
     Dosage: 500 MG/M2, Q2W
     Route: 065
  3. PREDNISONE. [Suspect]
     Active Substance: PREDNISONE
     Indication: CHRONIC LYMPHOCYTIC LEUKAEMIA
     Dosage: 1.5 MG/KG, QD
     Route: 065
  4. IBRUTINIB [Suspect]
     Active Substance: IBRUTINIB
     Dosage: 140 MG, QD
     Route: 065
  5. IBRUTINIB [Suspect]
     Active Substance: IBRUTINIB
     Dosage: 420 MG, QD
     Route: 065
  6. IBRUTINIB [Suspect]
     Active Substance: IBRUTINIB
     Indication: CHRONIC LYMPHOCYTIC LEUKAEMIA
     Dosage: 400 MG, QD
     Route: 065

REACTIONS (13)
  - Drug interaction [Unknown]
  - Pulmonary alveolar haemorrhage [Recovered/Resolved]
  - Pleural effusion [Recovered/Resolved]
  - Bronchopulmonary aspergillosis [Recovered/Resolved]
  - Cerebral aspergillosis [Recovered/Resolved]
  - Drug level increased [Recovered/Resolved]
  - Balance disorder [Recovered/Resolved]
  - Dyspnoea [Recovered/Resolved]
  - Pulmonary mass [Unknown]
  - Dizziness [Recovered/Resolved]
  - Aspergillus infection [Recovered/Resolved]
  - Hemiparesis [Recovered/Resolved]
  - Cough [Recovered/Resolved]
